FAERS Safety Report 11781086 (Version 1)
Quarter: 2015Q4

REPORT INFORMATION
  Report Type: Spontaneous
  Country: US (occurrence: US)
  Receive Date: 20151126
  Receipt Date: 20151126
  Transmission Date: 20160305
  Serious: No
  Sender: FDA-Public Use
  Company Number: US-009507513-1511USA005854

PATIENT
  Age: 66 Year
  Sex: Female

DRUGS (1)
  1. COZAAR [Suspect]
     Active Substance: LOSARTAN POTASSIUM
     Indication: HYPERTENSION
     Dosage: 100 MG/ ONCE A DAY
     Route: 048

REACTIONS (2)
  - Drug hypersensitivity [Unknown]
  - Abdominal discomfort [Recovered/Resolved]
